FAERS Safety Report 7205608-6 (Version None)
Quarter: 2010Q4

REPORT INFORMATION
  Report Type: 
  Country: None (occurrence: None)
  Receive Date: 20101231
  Receipt Date: 20100707
  Transmission Date: 20110411
  Serious: Yes (Other)
  Sender: FDA-Public Use
  Company Number: DE-NOVOPROD-305449

PATIENT
  Sex: Male
  Weight: 26 kg

DRUGS (1)
  1. NORDITROPIN [Suspect]
     Indication: SMALL FOR DATES BABY
     Dosage: 0.8 MG, QD
     Route: 058
     Dates: start: 20090213

REACTIONS (1)
  - ORAL NEOPLASM BENIGN [None]
